FAERS Safety Report 6699219-9 (Version None)
Quarter: 2010Q2

REPORT INFORMATION
  Report Type: 
  Country: None (occurrence: None)
  Receive Date: 20100427
  Receipt Date: 20100416
  Transmission Date: 20101027
  Serious: Yes (Hospitalization)
  Sender: FDA-Public Use
  Company Number: FR-TEVA-223323ISR

PATIENT
  Sex: Male

DRUGS (1)
  1. TERBINAFINE HCL [Suspect]
     Indication: FUNGAL INFECTION
     Route: 048
     Dates: start: 20080201

REACTIONS (2)
  - INTRACRANIAL PRESSURE INCREASED [None]
  - OPTIC NEURITIS [None]
